FAERS Safety Report 8860162 (Version 2)
Quarter: 2013Q1

REPORT INFORMATION
  Report Type: Spontaneous
  Country: US (occurrence: US)
  Receive Date: 20121025
  Receipt Date: 20130101
  Transmission Date: 20140127
  Serious: No
  Sender: FDA-Public Use
  Company Number: US-BIOGENIDEC-2012BI046646

PATIENT
  Age: 47 None
  Sex: Female

DRUGS (1)
  1. AVONEX [Suspect]
     Indication: MULTIPLE SCLEROSIS
     Route: 030
     Dates: start: 20120807

REACTIONS (7)
  - Abnormal sensation in eye [Not Recovered/Not Resolved]
  - Eye movement disorder [Recovered/Resolved]
  - Visual impairment [Not Recovered/Not Resolved]
  - Eye pain [Recovered/Resolved]
  - Vision blurred [Not Recovered/Not Resolved]
  - Painful respiration [Not Recovered/Not Resolved]
  - Band sensation [Not Recovered/Not Resolved]
